FAERS Safety Report 20542835 (Version 4)
Quarter: 2022Q2

REPORT INFORMATION
  Report Type: Report from Study
  Country: CN (occurrence: CN)
  Receive Date: 20220302
  Receipt Date: 20220511
  Transmission Date: 20220721
  Serious: Yes (Hospitalization)
  Sender: FDA-Public Use
  Company Number: CN-PFIZER INC-202200300208

PATIENT
  Age: 43 Year
  Sex: Female

DRUGS (5)
  1. EPIRUBICIN HYDROCHLORIDE [Suspect]
     Active Substance: EPIRUBICIN HYDROCHLORIDE
     Dosage: 10 MG, CYCLIC (Q2W), IVGTT
     Route: 042
     Dates: start: 20211222, end: 20220209
  2. PACLITAXEL [Suspect]
     Active Substance: PACLITAXEL
     Dosage: 0.1 G, CYCLIC (QW, D1/D8/D15/1 WEEK OFF), IVGTT
     Route: 042
     Dates: start: 20210818, end: 20211208
  3. INVESTIGATIONAL PRODUCT [Suspect]
     Active Substance: INVESTIGATIONAL PRODUCT
     Dosage: UNK, CYCLIC (Q2W), IVGTT
     Route: 042
     Dates: start: 20210818
  4. CARBOPLATIN [Suspect]
     Active Substance: CARBOPLATIN
     Dosage: 100 MG, CYCLIC (QW, D1/D8/D15/1 WEEK OFF), IVGTT
     Route: 042
     Dates: start: 20210818, end: 20211208
  5. CYCLOPHOSPHAMIDE [Suspect]
     Active Substance: CYCLOPHOSPHAMIDE
     Dosage: 200 MG, CYCLIC (Q2W), IVGTT
     Route: 042
     Dates: start: 20211222, end: 20220209

REACTIONS (1)
  - Gingivitis [Recovered/Resolved]

NARRATIVE: CASE EVENT DATE: 20220202
